FAERS Safety Report 21372619 (Version 1)
Quarter: 2022Q3

REPORT INFORMATION
  Report Type: Spontaneous
  Country: DE (occurrence: DE)
  Receive Date: 20220924
  Receipt Date: 20220924
  Transmission Date: 20221027
  Serious: Yes (Hospitalization, Other)
  Sender: FDA-Public Use
  Company Number: DE-NOVARTISPH-NVSC2022DE211422

PATIENT
  Age: 96 Year
  Sex: Female
  Weight: 65 kg

DRUGS (3)
  1. BISOPROLOL [Suspect]
     Active Substance: BISOPROLOL
     Indication: Product used for unknown indication
     Dosage: 5 MG, QD (5 MG, 1-0-0-0)
     Route: 065
  2. SIMVASTATIN [Concomitant]
     Active Substance: SIMVASTATIN
     Indication: Product used for unknown indication
     Dosage: 40 MG, QD (40 MG, 0-0-1-0)
     Route: 065
  3. ASPIRIN [Concomitant]
     Active Substance: ASPIRIN
     Indication: Product used for unknown indication
     Dosage: 100 MG, QD (100 MG, 1-0-0-0)
     Route: 065

REACTIONS (8)
  - Loss of consciousness [Recovered/Resolved]
  - Atrioventricular block [Recovered/Resolved]
  - Sinus arrest [Recovered/Resolved]
  - Electrocardiogram abnormal [Recovered/Resolved]
  - General physical health deterioration [Recovered/Resolved]
  - Bradycardia [Recovered/Resolved]
  - Dizziness [Recovered/Resolved]
  - Nausea [Recovered/Resolved]
